FAERS Safety Report 16460251 (Version 1)
Quarter: 2019Q2

REPORT INFORMATION
  Report Type: Spontaneous
  Country: DE (occurrence: DE)
  Receive Date: 20190620
  Receipt Date: 20190620
  Transmission Date: 20190711
  Serious: Yes (Disabling)
  Sender: FDA-Public Use
  Company Number: DE-MYLANLABS-2019M1056006

PATIENT
  Age: 17 Year
  Sex: Male

DRUGS (1)
  1. ALLERGODIL-FILMTABLETTEN [Suspect]
     Active Substance: AZELASTINE
     Indication: PRODUCT USED FOR UNKNOWN INDICATION
     Dosage: 1 DOSAGE FORM, QD (0-0-0-1)
     Route: 048
     Dates: start: 20190601, end: 20190604

REACTIONS (2)
  - Oral discomfort [Recovered/Resolved]
  - Ageusia [Recovered/Resolved]

NARRATIVE: CASE EVENT DATE: 20190601
